FAERS Safety Report 8433149 (Version 4)
Quarter: 2014Q1

REPORT INFORMATION
  Report Type: Spontaneous
  Country: US (occurrence: US)
  Receive Date: 20120229
  Receipt Date: 20140217
  Transmission Date: 20141002
  Serious: Yes (Other)
  Sender: FDA-Public Use
  Company Number: US-ALEXION-A201200338

PATIENT
  Age: 41 Year
  Sex: Female
  Weight: 81 kg

DRUGS (7)
  1. SOLIRIS 300MG [Suspect]
     Indication: HAEMOLYTIC URAEMIC SYNDROME
     Dosage: 900 MG, Q 2-3W
     Route: 042
  2. ASTEPRO [Concomitant]
     Indication: RHINITIS
     Dosage: UNK
  3. VERAPAMIL [Concomitant]
     Dosage: UNK
  4. ASPIRIN [Concomitant]
     Dosage: UNK
  5. ANTICORT [Concomitant]
     Indication: COELIAC DISEASE
     Dosage: UNK
  6. NIMODIPINE [Concomitant]
  7. BENADRYL [Concomitant]

REACTIONS (4)
  - Drug hypersensitivity [Not Recovered/Not Resolved]
  - Surgery [Unknown]
  - Shunt occlusion [Recovered/Resolved]
  - Sinusitis [Recovered/Resolved]
